FAERS Safety Report 11718565 (Version 1)
Quarter: 2015Q4

REPORT INFORMATION
  Report Type: Spontaneous
  Country: US (occurrence: None)
  Receive Date: 20151109
  Receipt Date: 20151109
  Transmission Date: 20160304
  Serious: Yes (Life-Threatening, Disabling, Other)
  Sender: FDA-Public Use
  Company Number: None

PATIENT
  Age: 42 Year
  Sex: Female
  Weight: 54.43 kg

DRUGS (35)
  1. D-RIBOSE [Concomitant]
     Active Substance: DIETARY SUPPLEMENT
  2. L-CARNITINE [Concomitant]
     Active Substance: LEVOCARNITINE
  3. PREDNISONE. [Concomitant]
     Active Substance: PREDNISONE
  4. TURMERIC [Concomitant]
     Active Substance: TURMERIC
  5. FISH OIL [Concomitant]
     Active Substance: FISH OIL
  6. B3 [Concomitant]
  7. VITAMIN E [Concomitant]
     Active Substance: .ALPHA.-TOCOPHEROL
  8. PROAIR HFA [Concomitant]
     Active Substance: ALBUTEROL SULFATE
  9. B1 [Concomitant]
  10. FOLINIC ACID [Concomitant]
     Active Substance: LEUCOVORIN
  11. VITAMIN B12 [Concomitant]
     Active Substance: CYANOCOBALAMIN
  12. GLUTATHIONE [Concomitant]
     Active Substance: GLUTATHIONE
  13. MELATONIN [Concomitant]
     Active Substance: MELATONIN
  14. NAC [Concomitant]
  15. ASTAXANTHIN [Concomitant]
  16. SYMBICORT [Concomitant]
     Active Substance: BUDESONIDE\FORMOTEROL FUMARATE DIHYDRATE
  17. B7 [Concomitant]
  18. PQQ [Concomitant]
  19. MANGANESE [Concomitant]
     Active Substance: MANGANESE\MANGANESE CHLORIDE
  20. LEVOFLOXACIN. [Suspect]
     Active Substance: LEVOFLOXACIN
     Indication: BRONCHITIS
     Dosage: 7 PILLS ONCE DAILY
     Route: 048
     Dates: start: 20140203, end: 20140205
  21. B2 [Concomitant]
  22. B5 [Concomitant]
  23. B6 [Concomitant]
     Active Substance: PYRIDOXINE HYDROCHLORIDE
  24. COQ10 [Concomitant]
     Active Substance: UBIDECARENONE
  25. ALPHA LIPOIC ACID [Concomitant]
     Active Substance: .ALPHA.-LIPOIC ACID
  26. QUETIAPINE [Concomitant]
     Active Substance: QUETIAPINE
  27. LORAZEPAM. [Concomitant]
     Active Substance: LORAZEPAM
  28. MITOQ [Concomitant]
  29. MAGNESIUM [Concomitant]
     Active Substance: MAGNESIUM
  30. L-THEANINE [Concomitant]
     Active Substance: DIETARY SUPPLEMENT
  31. D3 [Concomitant]
     Active Substance: 25-HYDROXYCHOLECALCIFEROL, 5-TRANS-
  32. DOCUSATE SODIUM. [Concomitant]
     Active Substance: DOCUSATE SODIUM
  33. VITAMIN C [Concomitant]
     Active Substance: ASCORBIC ACID
  34. L-THREONATE [Concomitant]
  35. VITAMIN A [Concomitant]
     Active Substance: VITAMIN A

REACTIONS (34)
  - Chronic fatigue syndrome [None]
  - Dry skin [None]
  - Muscular weakness [None]
  - Economic problem [None]
  - Quality of life decreased [None]
  - Neuropathy peripheral [None]
  - Insomnia [None]
  - Impaired gastric emptying [None]
  - Multiple sclerosis [None]
  - Diabetes insipidus [None]
  - Mental disorder [None]
  - Impaired work ability [None]
  - Tendon disorder [None]
  - Thyroid disorder [None]
  - Temperature regulation disorder [None]
  - Ill-defined disorder [None]
  - Executive dysfunction [None]
  - Asthma [None]
  - Dyslexia [None]
  - Dehydration [None]
  - Hyperacusis [None]
  - Emotional disorder [None]
  - Cognitive disorder [None]
  - Arthropathy [None]
  - Adrenal disorder [None]
  - Anxiety [None]
  - Diplopia [None]
  - Suicidal ideation [None]
  - Inflammation [None]
  - Amnesia [None]
  - Tachycardia [None]
  - Irritability [None]
  - Dry eye [None]
  - Dyspnoea [None]

NARRATIVE: CASE EVENT DATE: 20140203
